FAERS Safety Report 4876108-3 (Version None)
Quarter: 2006Q1

REPORT INFORMATION
  Report Type: 
  Country: None (occurrence: None)
  Receive Date: 20060106
  Receipt Date: 20060106
  Transmission Date: 20060701
  Serious: Yes (Hospitalization)
  Sender: FDA-Public Use
  Company Number: None

PATIENT
  Age: 34 Year
  Sex: Male
  Weight: 97.5234 kg

DRUGS (2)
  1. QUETIAPINE FUMARATE [Suspect]
     Indication: BIPOLAR DISORDER
     Dosage: 200MG QHS
     Dates: start: 20051206, end: 20051214
  2. ZIPRASIDONE [Suspect]
     Indication: AFFECTIVE DISORDER
     Dosage: 60 MG QPM
     Dates: start: 20051206, end: 20051214

REACTIONS (2)
  - BRADYCARDIA [None]
  - DIARRHOEA [None]
